FAERS Safety Report 7612077-0 (Version None)
Quarter: 2011Q3

REPORT INFORMATION
  Report Type: 
  Country: None (occurrence: None)
  Receive Date: 20110715
  Receipt Date: 20110704
  Transmission Date: 20111222
  Serious: Yes (Other)
  Sender: FDA-Public Use
  Company Number: CA-ELI_LILLY_AND_COMPANY-CA201107000952

PATIENT
  Age: 65 Year
  Sex: Female

DRUGS (16)
  1. DOMPERIDONE [Concomitant]
     Dosage: 10 MG, BID
  2. MAGNESIUM [Concomitant]
     Dosage: 500 MG, UNK
  3. VITAMIN D [Concomitant]
     Dosage: 1000 IU, UNK
  4. ADVIL LIQUI-GELS [Concomitant]
     Dosage: UNK, PRN
  5. ASCORBIC ACID [Concomitant]
     Dosage: 1000 MG, BID
  6. FORTEO [Suspect]
     Dosage: 20 UG, QD
     Route: 058
     Dates: start: 20110304
  7. IMURAN [Concomitant]
  8. FORTEO [Suspect]
     Indication: OSTEOPOROSIS
     Dosage: 20 UG, QD
     Route: 058
     Dates: start: 20101201, end: 20110227
  9. ENBREL [Concomitant]
  10. CALCIUM CARBONATE [Concomitant]
     Dosage: 500 MG, UNK
  11. POTASSIUM [Concomitant]
  12. ACETAMINOPHEN [Concomitant]
     Dosage: UNK, PRN
  13. MULTIVITAMINS PLUS IRON [Concomitant]
     Dosage: UNK, QD
  14. VITAMIN B COMPLEX CAP [Concomitant]
     Dosage: UNK, QD
  15. NAPROXEN (ALEVE) [Concomitant]
     Dosage: UNK, PRN
  16. VITAMIN A [Concomitant]
     Dosage: 10000 IU, UNK

REACTIONS (3)
  - POST PROCEDURAL COMPLICATION [None]
  - ANKLE OPERATION [None]
  - INJECTION SITE PAIN [None]
